FAERS Safety Report 8494633-3 (Version None)
Quarter: 2012Q3

REPORT INFORMATION
  Report Type: 
  Country: None (occurrence: None)
  Receive Date: 20120709
  Receipt Date: 20120628
  Transmission Date: 20120928
  Serious: Yes (Death, Life-Threatening, Hospitalization)
  Sender: FDA-Public Use
  Company Number: FR-MILLENNIUM PHARMACEUTICALS, INC.-2012-01419

PATIENT

DRUGS (11)
  1. CODEINE PHOSPHATE AND ACETAMINOPHEN [Concomitant]
  2. DEXAMETHASONE [Suspect]
     Indication: MULTIPLE MYELOMA
     Dosage: 20 MG, UNK
     Route: 048
     Dates: start: 20111104, end: 20120401
  3. VELCADE [Suspect]
     Indication: MULTIPLE MYELOMA
     Dosage: 2.4 MG, UNK
     Route: 042
     Dates: end: 20120401
  4. LERCANIDIPINE [Concomitant]
     Indication: HYPERTENSION
     Route: 048
  5. PERINDOPRIL ERBUMINE [Concomitant]
     Indication: HYPERTENSION
     Dosage: 8 MG, UNK
     Route: 048
  6. ACETAMINOPHEN [Concomitant]
  7. CLOPIDOGREL [Concomitant]
     Indication: CARDIAC DISORDER
  8. PLAVIX [Concomitant]
     Dosage: UNK
     Route: 048
  9. EZETIMIBE [Concomitant]
  10. CYCLOPHOSPHAMIDE [Suspect]
     Indication: MULTIPLE MYELOMA
     Dosage: 75 MG/M2, UNK
     Dates: start: 20111104, end: 20120401
  11. BISOPROLOL FUMARATE [Concomitant]
     Indication: HYPERTENSION
     Dosage: 2.5 MG, UNK
     Route: 048

REACTIONS (3)
  - DEATH [None]
  - MYOCARDIAL INFARCTION [None]
  - LUNG INFECTION [None]
